FAERS Safety Report 16913781 (Version 1)
Quarter: 2019Q4

REPORT INFORMATION
  Report Type: Spontaneous
  Country: KR (occurrence: KR)
  Receive Date: 20191014
  Receipt Date: 20191014
  Transmission Date: 20200122
  Serious: Yes (Other)
  Sender: FDA-Public Use
  Company Number: KR-UCBSA-2019042427

PATIENT

DRUGS (3)
  1. LEVETIRACETAM. [Suspect]
     Active Substance: LEVETIRACETAM
     Indication: EPILEPSY
     Dosage: UNKNOWN DOSE
  2. LEVETIRACETAM. [Suspect]
     Active Substance: LEVETIRACETAM
     Indication: OFF LABEL USE
  3. PERAMPANEL [Suspect]
     Active Substance: PERAMPANEL
     Indication: EPILEPSY
     Dosage: 2 MG ONCE DAILY AT BEDTIME AND THE DOSE WAS GRADUALLY INCREASED 2MG PER WEEK

REACTIONS (10)
  - Off label use [Unknown]
  - Seizure [Unknown]
  - Aggression [Recovered/Resolved]
  - Insomnia [Recovered/Resolved]
  - Weight increased [Unknown]
  - Somnolence [Recovered/Resolved]
  - Vomiting [Unknown]
  - Dizziness [Recovered/Resolved]
  - Drooling [Unknown]
  - Drug ineffective [Unknown]
